FAERS Safety Report 7997940-3 (Version None)
Quarter: 2011Q4

REPORT INFORMATION
  Report Type: 
  Country: None (occurrence: None)
  Receive Date: 20111221
  Receipt Date: 20111219
  Transmission Date: 20120403
  Serious: Yes (Other)
  Sender: FDA-Public Use
  Company Number: CA-TEVA-314091USA

PATIENT
  Age: 74 Year
  Sex: Male

DRUGS (3)
  1. ALPROSTADIL [Suspect]
     Indication: ERECTILE DYSFUNCTION
     Dosage: MCG/ML
  2. PAPAVERINE [Suspect]
     Indication: ERECTILE DYSFUNCTION
  3. PHENTOLAMINE MESYLATE [Suspect]
     Indication: ERECTILE DYSFUNCTION

REACTIONS (1)
  - PRIAPISM [None]
